FAERS Safety Report 21640551 (Version 1)
Quarter: 2022Q4

REPORT INFORMATION
  Report Type: Spontaneous
  Country: US (occurrence: US)
  Receive Date: 20221124
  Receipt Date: 20221124
  Transmission Date: 20230113
  Serious: No
  Sender: FDA-Public Use
  Company Number: US-SA-SAC20221123000343

PATIENT
  Sex: Female

DRUGS (2)
  1. KEVZARA [Suspect]
     Active Substance: SARILUMAB
     Indication: Polyarthritis
     Dosage: 200 MG, QOW
     Route: 058
     Dates: start: 202210
  2. KEVZARA [Suspect]
     Active Substance: SARILUMAB
     Dosage: 200MG

REACTIONS (5)
  - Hot flush [Unknown]
  - Pain [Unknown]
  - Fibromyalgia [Unknown]
  - Product use in unapproved indication [Unknown]
  - Drug ineffective [Unknown]

NARRATIVE: CASE EVENT DATE: 20220101
